FAERS Safety Report 24312277 (Version 1)
Quarter: 2024Q3

REPORT INFORMATION
  Report Type: Spontaneous
  Country: GB (occurrence: GB)
  Receive Date: 20240912
  Receipt Date: 20240912
  Transmission Date: 20241017
  Serious: Yes (Other)
  Sender: VERTEX
  Company Number: GB-VERTEX PHARMACEUTICALS-2023-012006

PATIENT

DRUGS (4)
  1. TRIKAFTA [Suspect]
     Active Substance: ELEXACAFTOR\IVACAFTOR\TEZACAFTOR
     Indication: Cystic fibrosis
     Dosage: FULL DOSE
     Route: 048
  2. TRIKAFTA [Suspect]
     Active Substance: ELEXACAFTOR\IVACAFTOR\TEZACAFTOR
     Dosage: ORANGE TABLETS IN THE EVENING AND BLUE TABLET IN THE MORNING
     Route: 048
  3. TRIKAFTA [Suspect]
     Active Substance: ELEXACAFTOR\IVACAFTOR\TEZACAFTOR
     Dosage: REDUCED DOSE (ORANGE TABS ONE MORNING AND BLUE PILL THE NEXT MORNING)
     Route: 048
  4. TRIKAFTA [Suspect]
     Active Substance: ELEXACAFTOR\IVACAFTOR\TEZACAFTOR
     Dosage: FULL DOSE (ORANGE TABLETS IN THE EVENING AND BLUE TABLET IN THE MORNING)
     Route: 048

REACTIONS (9)
  - Cholelithiasis [Recovered/Resolved]
  - Gilbert^s syndrome [Unknown]
  - Weight gain poor [Unknown]
  - Brain fog [Recovering/Resolving]
  - Alopecia [Not Recovered/Not Resolved]
  - Malaise [Recovering/Resolving]
  - Anxiety [Not Recovered/Not Resolved]
  - Mental disorder [Recovering/Resolving]
  - Depression [Not Recovered/Not Resolved]
